FAERS Safety Report 5144551-3 (Version None)
Quarter: 2006Q4

REPORT INFORMATION
  Report Type: 
  Country: None (occurrence: None)
  Receive Date: 20061031
  Receipt Date: 20061018
  Transmission Date: 20070319
  Serious: Yes (Life-Threatening)
  Sender: FDA-Public Use
  Company Number: 2006124404

PATIENT
  Age: 78 Year
  Sex: Male

DRUGS (3)
  1. ZYVOX [Suspect]
     Indication: ENTEROCOCCAL INFECTION
     Dosage: 1200 MG (1200 MG, 1 IN 1 D), INTRAVENOUS
     Route: 042
     Dates: start: 20060925, end: 20061006
  2. PIPERACILLIN SODIUM AND TAZOBACTAM SODIUM [Concomitant]
  3. DIFLUCAN [Concomitant]

REACTIONS (2)
  - CONDITION AGGRAVATED [None]
  - HYPERCALCAEMIA [None]
